FAERS Safety Report 16896931 (Version 1)
Quarter: 2019Q4

REPORT INFORMATION
  Report Type: Spontaneous
  Country: US (occurrence: US)
  Receive Date: 20191009
  Receipt Date: 20191009
  Transmission Date: 20200122
  Serious: No
  Sender: FDA-Public Use
  Company Number: US-LUPIN PHARMACEUTICALS INC.-2019-05813

PATIENT
  Sex: Female

DRUGS (1)
  1. SOLOSEC [Suspect]
     Active Substance: SECNIDAZOLE
     Indication: FUNGAL INFECTION
     Dosage: UNK, CONSUMED WITH APPLE SAUCE WITHOUT CHEWING
     Route: 065

REACTIONS (1)
  - Vomiting [Unknown]
